FAERS Safety Report 5115769-0 (Version None)
Quarter: 2006Q3

REPORT INFORMATION
  Report Type: 
  Country: None (occurrence: None)
  Receive Date: 20060927
  Receipt Date: 20060907
  Transmission Date: 20061208
  Serious: Yes (Death, Hospitalization)
  Sender: FDA-Public Use
  Company Number: PHNU2006SI03068

PATIENT
  Age: 53 Year
  Sex: Male

DRUGS (2)
  1. EXELON [Suspect]
     Indication: DEMENTIA
     Dosage: 3 MG, BID
     Route: 048
     Dates: start: 20060701
  2. EGLONYL [Concomitant]
     Dosage: UNKNOWN
     Route: 065

REACTIONS (10)
  - ARTERIOSCLEROSIS CORONARY ARTERY [None]
  - BENIGN PROSTATIC HYPERPLASIA [None]
  - BRAIN OEDEMA [None]
  - HAEMORRHAGIC ASCITES [None]
  - HEPATIC FIBROSIS [None]
  - HYDROTHORAX [None]
  - PANCREATITIS ACUTE [None]
  - PANCREATITIS HAEMORRHAGIC [None]
  - PULMONARY OEDEMA [None]
  - SPLENITIS [None]
